FAERS Safety Report 6808563-3 (Version None)
Quarter: 2010Q2

REPORT INFORMATION
  Report Type: 
  Country: None (occurrence: None)
  Receive Date: 20100629
  Receipt Date: 20090729
  Transmission Date: 20101027
  Serious: No
  Sender: FDA-Public Use
  Company Number: US-PFIZER INC-2009232651

PATIENT
  Sex: Female
  Weight: 63.502 kg

DRUGS (1)
  1. XANAX [Suspect]
     Indication: ANXIETY
     Dosage: 0.375 MG, 1X/DAY
     Dates: start: 20090401

REACTIONS (1)
  - ANXIETY [None]
